FAERS Safety Report 5024084-5 (Version None)
Quarter: 2006Q2

REPORT INFORMATION
  Report Type: 
  Country: None (occurrence: None)
  Receive Date: 20060607
  Receipt Date: 20060524
  Transmission Date: 20061013
  Serious: Yes (Death)
  Sender: FDA-Public Use
  Company Number: 2006069295

PATIENT
  Sex: Male

DRUGS (3)
  1. BEXTRA [Suspect]
     Indication: ILL-DEFINED DISORDER
     Dates: start: 20000111, end: 20040429
  2. CELEBREX [Suspect]
     Indication: ILL-DEFINED DISORDER
     Dates: start: 20000111, end: 20040429
  3. VIOXX [Suspect]
     Indication: ILL-DEFINED DISORDER
     Dates: start: 20001003, end: 20040429

REACTIONS (1)
  - MYOCARDIAL INFARCTION [None]
